FAERS Safety Report 15342397 (Version 5)
Quarter: 2022Q3

REPORT INFORMATION
  Report Type: Spontaneous
  Country: FR (occurrence: FR)
  Receive Date: 20180902
  Receipt Date: 20220705
  Transmission Date: 20221027
  Serious: Yes (Hospitalization, Other)
  Sender: FDA-Public Use
  Company Number: PHHY2018FR087828

PATIENT
  Age: 19 Year
  Sex: Female

DRUGS (4)
  1. TACROLIMUS [Suspect]
     Active Substance: TACROLIMUS
     Indication: Transplant rejection
     Dosage: 6 MG, QD
     Route: 048
     Dates: start: 20170602
  2. PREDNISONE [Concomitant]
     Active Substance: PREDNISONE
     Indication: Immunosuppression
     Dosage: 20 UNKNOWN UNITS, ONCE DAILY
     Route: 065
     Dates: start: 20170601, end: 20170620
  3. PREDNISONE [Concomitant]
     Active Substance: PREDNISONE
     Dosage: 15 UNKNOWN UNITS, ONCE DAILY
     Route: 065
     Dates: start: 20170621, end: 20170717
  4. CELLCEPT [Concomitant]
     Active Substance: MYCOPHENOLATE MOFETIL
     Indication: Immunosuppression
     Dosage: 2000 UNKNOWN UNITS, ONCE DAILY
     Route: 065
     Dates: start: 20170601

REACTIONS (2)
  - Hepatic cytolysis [Recovering/Resolving]
  - Liver function test abnormal [Not Recovered/Not Resolved]

NARRATIVE: CASE EVENT DATE: 20170705
